FAERS Safety Report 11820116 (Version 7)
Quarter: 2022Q3

REPORT INFORMATION
  Report Type: Other
  Country: CA (occurrence: None)
  Receive Date: 20151210
  Receipt Date: 20220819
  Transmission Date: 20221027
  Serious: Yes (Other)
  Sender: FDA-Public Use
  Company Number: CA-ROCHE-1218012

PATIENT
  Sex: Female
  Weight: 72.6 kg

DRUGS (12)
  1. RITUXAN [Suspect]
     Active Substance: RITUXIMAB
     Indication: Rheumatoid arthritis
     Dosage: DAY 1 AND DAY 15
     Route: 042
     Dates: start: 20090528, end: 20130614
  2. RITUXAN [Suspect]
     Active Substance: RITUXIMAB
     Route: 042
     Dates: start: 20131105, end: 20190613
  3. ORENCIA [Suspect]
     Active Substance: ABATACEPT
     Indication: Rheumatoid arthritis
     Route: 058
     Dates: end: 202206
  4. DIPHENHYDRAMINE HYDROCHLORIDE [Concomitant]
     Active Substance: DIPHENHYDRAMINE HYDROCHLORIDE
     Indication: Premedication
     Route: 048
     Dates: start: 20090528
  5. ACETAMINOPHEN [Concomitant]
     Active Substance: ACETAMINOPHEN
     Indication: Premedication
     Route: 048
     Dates: start: 20090528
  6. AMLODIPINE [Concomitant]
     Active Substance: AMLODIPINE BESYLATE
     Indication: Hypertension
     Dates: start: 201211
  7. CANDESARTAN [Concomitant]
     Active Substance: CANDESARTAN
     Indication: Hypertension
  8. SERTRALINE [Concomitant]
     Active Substance: SERTRALINE HYDROCHLORIDE
     Indication: Anxiety
  9. LEUCOVORIN [Concomitant]
     Active Substance: LEUCOVORIN
     Route: 048
  10. METHOTREXATE [Concomitant]
     Active Substance: METHOTREXATE
  11. METHYLPREDNISOLONE [Concomitant]
     Active Substance: METHYLPREDNISOLONE
     Indication: Premedication
     Route: 042
     Dates: start: 20090528
  12. PREDNISONE [Concomitant]
     Active Substance: PREDNISONE

REACTIONS (13)
  - Hypothyroidism [Unknown]
  - Blood pressure increased [Unknown]
  - Weight increased [Recovering/Resolving]
  - Rash [Unknown]
  - Throat irritation [Recovered/Resolved]
  - Chronic sinusitis [Unknown]
  - Sinusitis [Unknown]
  - Eye infection [Unknown]
  - Off label use [Unknown]
  - Diabetes mellitus [Unknown]
  - Anxiety [Unknown]
  - Blood cholesterol increased [Unknown]
  - COVID-19 [Unknown]

NARRATIVE: CASE EVENT DATE: 20120101
